FAERS Safety Report 6237069-8 (Version None)
Quarter: 2009Q2

REPORT INFORMATION
  Report Type: 
  Country: None (occurrence: None)
  Receive Date: 20090619
  Receipt Date: 20090611
  Transmission Date: 20091009
  Serious: Yes (Hospitalization)
  Sender: FDA-Public Use
  Company Number: US-ABBOTT-09P-163-0579677-00

PATIENT

DRUGS (1)
  1. KALETRA [Suspect]
     Indication: HIV INFECTION
     Route: 048

REACTIONS (1)
  - HYPOTENSION [None]
